FAERS Safety Report 11399403 (Version 1)
Quarter: 2015Q3

REPORT INFORMATION
  Report Type: Spontaneous
  Country: US (occurrence: None)
  Receive Date: 20150818
  Receipt Date: 20150818
  Transmission Date: 20151125
  Serious: Yes (Hospitalization)
  Sender: FDA-Public Use
  Company Number: None

PATIENT
  Age: 58 Year
  Sex: Male
  Weight: 96.62 kg

DRUGS (2)
  1. BEVACIZUMAB [Suspect]
     Active Substance: BEVACIZUMAB
     Indication: GLIOBLASTOMA
     Dosage: DAY 1 + 15
     Route: 042
     Dates: start: 20150529
  2. CARBOPLATIN. [Suspect]
     Active Substance: CARBOPLATIN
     Indication: GLIOBLASTOMA
     Route: 042
     Dates: start: 20150612

REACTIONS (6)
  - Vomiting [None]
  - Abdominal pain [None]
  - Nausea [None]
  - Urinary retention [None]
  - Headache [None]
  - Constipation [None]

NARRATIVE: CASE EVENT DATE: 20150811
